FAERS Safety Report 8961453 (Version 2)
Quarter: 2013Q1

REPORT INFORMATION
  Report Type: Spontaneous
  Country: DE (occurrence: DE)
  Receive Date: 20121213
  Receipt Date: 20130102
  Transmission Date: 20140127
  Serious: Yes (Hospitalization, Other)
  Sender: FDA-Public Use
  Company Number: DE-JNJFOC-20121202050

PATIENT
  Age: 76 Year
  Sex: Male

DRUGS (7)
  1. REMINYL [Suspect]
     Indication: CEREBRAL ATROPHY
     Route: 065
  2. REMINYL [Suspect]
     Indication: CEREBRAL ATROPHY
     Route: 065
     Dates: start: 200707
  3. REMINYL [Suspect]
     Indication: CEREBRAL ATROPHY
     Route: 065
     Dates: start: 2008
  4. REMINYL [Suspect]
     Indication: CEREBRAL ATROPHY
     Dosage: INITIATED 5-6 YEARS AGO
     Route: 065
     Dates: start: 2010
  5. CLOPIDOGREL [Concomitant]
     Route: 065
  6. JANUVIA [Concomitant]
     Route: 065
  7. SIMVA [Concomitant]
     Route: 065

REACTIONS (2)
  - Arrhythmia [Unknown]
  - Sick sinus syndrome [Unknown]
